FAERS Safety Report 4572184-6 (Version None)
Quarter: 2005Q1

REPORT INFORMATION
  Report Type: 
  Country: None (occurrence: None)
  Receive Date: 20050202
  Receipt Date: 20050114
  Transmission Date: 20050727
  Serious: Yes (Hospitalization)
  Sender: FDA-Public Use
  Company Number: 05P-028-0287666-00

PATIENT
  Age: 87 Year
  Sex: Female

DRUGS (17)
  1. VERAPAMIL HCL [Suspect]
  2. HYDROCHLOROTHIAZIDE [Concomitant]
  3. TRIAMTERENE [Concomitant]
  4. GALENIC/PARACETAMOL/CODEINE [Concomitant]
  5. ACETAMINOPHEN [Concomitant]
  6. ACETYLSALICYLIC ACID [Concomitant]
  7. ALBUTEROL [Concomitant]
  8. TIMOILOL [Concomitant]
  9. ISOSORBIDE DINITRATE [Concomitant]
  10. ALENDRONATE SODIUM [Concomitant]
  11. IPATROPIUM BROMIDE [Concomitant]
  12. ALBUTEROL [Concomitant]
  13. POTASSIUM CHLORIDE [Concomitant]
  14. NITRO-DUR [Concomitant]
  15. UNIDENT [Concomitant]
  16. FLUTICASONE PROPIONATE [Concomitant]
  17. SALMETEROL [Concomitant]

REACTIONS (7)
  - BILE DUCT STONE [None]
  - CHOLANGITIS ACUTE [None]
  - MUSCLE SPASMS [None]
  - ORTHOSTATIC HYPOTENSION [None]
  - RESTLESSNESS [None]
  - UPPER RESPIRATORY TRACT INFECTION [None]
  - URINARY INCONTINENCE [None]
